FAERS Safety Report 4473651-6 (Version None)
Quarter: 2004Q4

REPORT INFORMATION
  Report Type: 
  Country: None (occurrence: None)
  Receive Date: 20041013
  Receipt Date: 20041005
  Transmission Date: 20050328
  Serious: Yes (Life-Threatening, Disabling)
  Sender: FDA-Public Use
  Company Number: US-MERCK-0410USA00719

PATIENT
  Age: 72 Year
  Sex: Female

DRUGS (4)
  1. ASPIRIN [Concomitant]
     Route: 065
  2. PLAVIX [Concomitant]
     Route: 065
  3. COZAAR [Concomitant]
     Route: 048
  4. VIOXX [Suspect]
     Indication: ARTHRITIS
     Route: 048
     Dates: start: 20040804, end: 20040815

REACTIONS (2)
  - HAEMATOCHEZIA [None]
  - NAUSEA [None]
